FAERS Safety Report 11519695 (Version 1)
Quarter: 2015Q3

REPORT INFORMATION
  Report Type: Spontaneous
  Country: CH (occurrence: CH)
  Receive Date: 20150918
  Receipt Date: 20150918
  Transmission Date: 20151125
  Serious: Yes (Hospitalization, Disabling, Other)
  Sender: FDA-Public Use
  Company Number: CH-AMGEN-CHESP2015094183

PATIENT
  Age: 65 Year
  Sex: Male
  Weight: 76 kg

DRUGS (10)
  1. XENALON [Concomitant]
     Dosage: 25 MG, DAILY
  2. METO ZEROK [Concomitant]
     Active Substance: METOPROLOL SUCCINATE
     Dosage: 100 MG, DAILY
  3. TIATRAL                            /00002701/ [Concomitant]
     Dosage: 100 MG, DAILY
  4. LISINOPRIL. [Concomitant]
     Active Substance: LISINOPRIL
     Dosage: 20 MG, DAILY
  5. PROCORALAN [Suspect]
     Active Substance: IVABRADINE
     Indication: CORONARY ARTERY DISEASE
     Dosage: 2.5 MG, BID
     Route: 048
     Dates: start: 20130620, end: 20130630
  6. PROCORALAN [Suspect]
     Active Substance: IVABRADINE
     Indication: CARDIAC FAILURE
     Dosage: 5 MG, BID
     Route: 048
     Dates: start: 20130701, end: 201307
  7. PROCORALAN [Suspect]
     Active Substance: IVABRADINE
     Dosage: 7.5 MG, BID
     Route: 048
     Dates: start: 201307, end: 2014
  8. PROCORALAN [Suspect]
     Active Substance: IVABRADINE
     Dosage: 7.5 MG, QD
     Route: 048
     Dates: start: 2014, end: 20141217
  9. TORASEM [Concomitant]
     Active Substance: TORSEMIDE
     Dosage: 5 MG, DAILY
  10. SIMVASTATINA MEPHA [Concomitant]
     Dosage: 40 MG, DAILY

REACTIONS (4)
  - Photopsia [Unknown]
  - Cataract [Unknown]
  - Retinal detachment [Unknown]
  - Visual acuity reduced [Unknown]

NARRATIVE: CASE EVENT DATE: 20130902
